FAERS Safety Report 5811972-2 (Version None)
Quarter: 2008Q3

REPORT INFORMATION
  Report Type: 
  Country: None (occurrence: None)
  Receive Date: 20080716
  Receipt Date: 20080708
  Transmission Date: 20090109
  Serious: Yes (Other)
  Sender: FDA-Public Use
  Company Number: US-ABBOTT-08P-163-0461020-00

PATIENT
  Sex: Female
  Weight: 78.542 kg

DRUGS (4)
  1. DEPAKOTE [Suspect]
     Indication: NEURALGIA
     Route: 048
     Dates: start: 20080601, end: 20080702
  2. DEPAKOTE [Suspect]
     Route: 048
     Dates: start: 20080417, end: 20080424
  3. DULOXETINE HYDROCHLORIDE [Suspect]
     Indication: NEURALGIA
     Route: 048
     Dates: start: 20080417, end: 20080706
  4. GABAPENTIN [Suspect]
     Indication: NEURALGIA
     Route: 048
     Dates: start: 20080417, end: 20080706

REACTIONS (3)
  - GRAND MAL CONVULSION [None]
  - MALAISE [None]
  - MYALGIA [None]
